FAERS Safety Report 18371346 (Version 1)
Quarter: 2020Q4

REPORT INFORMATION
  Report Type: Other
  Country: IT (occurrence: IT)
  Receive Date: 20201012
  Receipt Date: 20201012
  Transmission Date: 20210114
  Serious: Yes (Other)
  Sender: FDA-Public Use
  Company Number: IT-NAVINTA LLC-000104

PATIENT
  Age: 57 Year
  Sex: Male

DRUGS (3)
  1. ENOXAPARIN [Concomitant]
     Active Substance: ENOXAPARIN
     Indication: PRODUCT USED FOR UNKNOWN INDICATION
     Dosage: SUBCUTANEOUSLY ABOUT 12 H BEFORE AND AFTER EPIDURAL CATHETER INSERTION
     Route: 058
  2. ROPIVACAINE. [Suspect]
     Active Substance: ROPIVACAINE HYDROCHLORIDE
     Indication: PROCEDURAL PAIN
     Route: 042
  3. FENTANYL. [Suspect]
     Active Substance: FENTANYL
     Indication: PROCEDURAL PAIN
     Dosage: 2 MICRO GRAM/ML AT 5 TO 6 ML/H BEFORE THE END OF SURGERY
     Route: 042

REACTIONS (5)
  - Abdominal pain [Unknown]
  - Intra-abdominal fluid collection [Unknown]
  - Extradural abscess [Not Recovered/Not Resolved]
  - Abdominal distension [Unknown]
  - Administration site erythema [Unknown]
